FAERS Safety Report 12634369 (Version 3)
Quarter: 2016Q3

REPORT INFORMATION
  Report Type: Report from Study
  Country: RO (occurrence: RO)
  Receive Date: 20160808
  Receipt Date: 20160910
  Transmission Date: 20161109
  Serious: Yes (Hospitalization)
  Sender: FDA-Public Use
  Company Number: RO-ABBVIE-16P-135-1693534-00

PATIENT
  Age: 63 Year
  Sex: Male
  Weight: 50 kg

DRUGS (11)
  1. SPIRONOLACTONE. [Concomitant]
     Active Substance: SPIRONOLACTONE
     Indication: DIURETIC THERAPY
     Dates: start: 20160729
  2. AMPICILLIN AND SULBACTAM [Concomitant]
     Active Substance: AMPICILLIN SODIUM\SULBACTAM SODIUM
     Indication: DYSBACTERIOSIS
     Route: 042
     Dates: start: 20160729
  3. EXVIERA [Suspect]
     Active Substance: DASABUVIR
     Indication: CHRONIC HEPATITIS C
     Route: 048
     Dates: start: 20160714, end: 20160810
  4. VITAMIN B1 [Concomitant]
     Active Substance: THIAMINE HYDROCHLORIDE
     Indication: LIVER DISORDER
     Dosage: 2 VIALS/DAY
     Route: 042
     Dates: start: 20160729
  5. NORMIX [Concomitant]
     Active Substance: RIFAXIMIN
     Indication: DYSBACTERIOSIS
     Route: 048
     Dates: start: 20160729
  6. VITAMIN K [Concomitant]
     Active Substance: PHYTONADIONE
     Indication: COAGULOPATHY
     Dosage: 2 VIALS/DAY
     Route: 042
     Dates: start: 20160729
  7. MODERIBA [Suspect]
     Active Substance: RIBAVIRIN
     Indication: CHRONIC HEPATITIS C
     Route: 048
     Dates: start: 20160714, end: 20160729
  8. FOLIC ACID. [Concomitant]
     Active Substance: FOLIC ACID
     Indication: PRODUCT USED FOR UNKNOWN INDICATION
     Route: 048
     Dates: start: 20160729
  9. VIEKIRAX [Suspect]
     Active Substance: OMBITASVIR\PARITAPREVIR\RITONAVIR
     Indication: CHRONIC HEPATITIS C
     Route: 048
     Dates: start: 20160714, end: 20160810
  10. VITAMIN B6 [Concomitant]
     Active Substance: PYRIDOXINE HYDROCHLORIDE
     Indication: LIVER DISORDER
     Dosage: 1 VIAL/DAY
     Dates: start: 20160729
  11. PROPRANOLOL [Concomitant]
     Active Substance: PROPRANOLOL\PROPRANOLOL HYDROCHLORIDE
     Indication: VENOUS PRESSURE
     Route: 048
     Dates: start: 20160729

REACTIONS (2)
  - Anaemia [Not Recovered/Not Resolved]
  - Jaundice [Not Recovered/Not Resolved]

NARRATIVE: CASE EVENT DATE: 20160729
